FAERS Safety Report 14184951 (Version 2)
Quarter: 2018Q1

REPORT INFORMATION
  Report Type: Report from Study
  Country: US (occurrence: US)
  Receive Date: 20171113
  Receipt Date: 20180104
  Transmission Date: 20180508
  Serious: Yes (Other)
  Sender: FDA-Public Use
  Company Number: US-BAUSCH-BL-2017-031037

PATIENT
  Age: 65 Year
  Sex: Female
  Weight: 48.58 kg

DRUGS (2)
  1. XENAZINE [Suspect]
     Active Substance: TETRABENAZINE
     Indication: DYSKINESIA
     Route: 048
     Dates: start: 20171104
  2. XENAZINE [Suspect]
     Active Substance: TETRABENAZINE
     Indication: CHOREA

REACTIONS (9)
  - Tremor [Unknown]
  - Hypokinesia [Unknown]
  - Gait disturbance [Unknown]
  - Off label use [Not Recovered/Not Resolved]
  - Musculoskeletal stiffness [Recovered/Resolved]
  - Movement disorder [Unknown]
  - Insomnia [Unknown]
  - Drug ineffective [Unknown]
  - Condition aggravated [Recovered/Resolved]

NARRATIVE: CASE EVENT DATE: 201711
